FAERS Safety Report 4771196-7 (Version None)
Quarter: 2005Q3

REPORT INFORMATION
  Report Type: 
  Country: None (occurrence: None)
  Receive Date: 20050914
  Receipt Date: 20050825
  Transmission Date: 20060218
  Serious: Yes (Death, Life-Threatening, Hospitalization, Disabling)
  Sender: FDA-Public Use
  Company Number: US_0504114995

PATIENT
  Age: 54 Year
  Sex: Female
  Weight: 70 kg

DRUGS (13)
  1. GEMCITABINE HYDROCHLORIDE-IV (GEMCITABINE) [Suspect]
     Indication: BREAST CANCER
     Dosage: 2000 MG/M2 OTHER
     Route: 050
     Dates: start: 20050128, end: 20050311
  2. PACLITAXEL [Suspect]
     Indication: BREAST CANCER
     Dosage: 175 MG/M2 OTHER
     Route: 050
     Dates: start: 20050128, end: 20050311
  3. NEUPOGEN [Concomitant]
  4. PROCRIT [Concomitant]
  5. LORAZEPAM [Concomitant]
  6. ENDOCET [Concomitant]
  7. ANZEMET (DOLASETRON MESILATE) [Concomitant]
  8. DARVOCET [Concomitant]
  9. PEPCID [Concomitant]
  10. DILANTIN (PHENYTOIN /00017401/) [Concomitant]
  11. DEMEROL [Concomitant]
  12. MORPHINE [Concomitant]
  13. TYLENOL [Concomitant]

REACTIONS (12)
  - ASTHENIA [None]
  - BRAIN DEATH [None]
  - BREAST CANCER METASTATIC [None]
  - CEREBRAL HAEMATOMA [None]
  - CEREBRAL ISCHAEMIA [None]
  - CONVULSION [None]
  - HAEMORRHAGE INTRACRANIAL [None]
  - HYPOAESTHESIA [None]
  - LOSS OF CONSCIOUSNESS [None]
  - METASTASES TO MENINGES [None]
  - NECK PAIN [None]
  - SUBARACHNOID HAEMORRHAGE [None]
